FAERS Safety Report 8176826-8 (Version None)
Quarter: 2012Q1

REPORT INFORMATION
  Report Type: 
  Country: None (occurrence: None)
  Receive Date: 20120301
  Receipt Date: 20120220
  Transmission Date: 20120608
  Serious: Yes (Hospitalization, Other)
  Sender: FDA-Public Use
  Company Number: NL-MEDIMMUNE-MEDI-0014765

PATIENT
  Sex: Male
  Weight: 7.23 kg

DRUGS (2)
  1. SYNAGIS [Suspect]
     Indication: PREMATURE BABY
     Route: 030
     Dates: start: 20111004, end: 20111227
  2. SYNAGIS [Suspect]
     Route: 030
     Dates: start: 20120123, end: 20120123

REACTIONS (12)
  - EAR PAIN [None]
  - RHINOVIRUS INFECTION [None]
  - DIARRHOEA [None]
  - COUGH [None]
  - VIRAL INFECTION [None]
  - METAPNEUMOVIRUS INFECTION [None]
  - PYREXIA [None]
  - OROPHARYNGEAL PAIN [None]
  - OXYGEN SATURATION DECREASED [None]
  - BLOOD PRESSURE DECREASED [None]
  - RESPIRATORY SYNCYTIAL VIRUS INFECTION [None]
  - HYPOVENTILATION [None]
